FAERS Safety Report 15785572 (Version 1)
Quarter: 2019Q1

REPORT INFORMATION
  Report Type: Spontaneous
  Country: US (occurrence: US)
  Receive Date: 20190101
  Receipt Date: 20190101
  Transmission Date: 20190417
  Serious: Yes (Other)
  Sender: FDA-Public Use
  Company Number: None

PATIENT
  Age: 7 Year
  Sex: Male
  Weight: 13.05 kg

DRUGS (7)
  1. CLOBAZAM ORAL SUSPENSION [Suspect]
     Active Substance: CLOBAZAM
     Indication: LENNOX-GASTAUT SYNDROME
     Dosage: ?          QUANTITY:120 OUNCE(S);OTHER ROUTE:GTUBE?
     Dates: start: 20181101, end: 20190101
  2. BANZEL [Concomitant]
     Active Substance: RUFINAMIDE
  3. EPIDIOLEX [Concomitant]
     Active Substance: CANNABIDIOL
  4. NEXIUM [Concomitant]
     Active Substance: ESOMEPRAZOLE MAGNESIUM
  5. ZYRTEC [Concomitant]
     Active Substance: CETIRIZINE HYDROCHLORIDE
  6. ONFI [Concomitant]
     Active Substance: CLOBAZAM
  7. RANITIDINE. [Concomitant]
     Active Substance: RANITIDINE

REACTIONS (3)
  - Therapeutic response changed [None]
  - Drug effect decreased [None]
  - Product substitution issue [None]

NARRATIVE: CASE EVENT DATE: 20181101
